FAERS Safety Report 22001435 (Version 4)
Quarter: 2023Q2

REPORT INFORMATION
  Report Type: Spontaneous
  Country: US (occurrence: US)
  Receive Date: 20230216
  Receipt Date: 20230606
  Transmission Date: 20230722
  Serious: Yes (Hospitalization, Other)
  Sender: FDA-Public Use
  Company Number: US-BRISTOL-MYERS SQUIBB COMPANY-2023-023268

PATIENT
  Age: 74 Year
  Sex: Female

DRUGS (4)
  1. REVLIMID [Suspect]
     Active Substance: LENALIDOMIDE
     Indication: Plasmacytoma
  2. REVLIMID [Suspect]
     Active Substance: LENALIDOMIDE
     Dosage: TAKE 1 CAPSULE BY MOUTH EVERY DAY FOR 14 DAYS THEN 7 DAYS OFF
     Route: 048
     Dates: start: 20230222
  3. REVLIMID [Suspect]
     Active Substance: LENALIDOMIDE
     Dosage: TAKE 1 CAPSULE BY MOUTH EVERY DAY FOR 14 DAYS THEN 7 DAYS OFF
     Route: 048
     Dates: start: 20230214
  4. REVLIMID [Suspect]
     Active Substance: LENALIDOMIDE
     Dosage: TAKE 1 CAPSULE (25MG) BY MOUTH EVERY DAY FOR 2 WEEKS ON, 1 WEEK
     Route: 048
     Dates: start: 20230313

REACTIONS (7)
  - Pain [Unknown]
  - Malnutrition [Unknown]
  - Eating disorder [Unknown]
  - Off label use [Unknown]
  - Dehydration [Not Recovered/Not Resolved]
  - Bone neoplasm [Not Recovered/Not Resolved]
  - Limb discomfort [Not Recovered/Not Resolved]
